FAERS Safety Report 19947733 (Version 2)
Quarter: 2021Q4

REPORT INFORMATION
  Report Type: Spontaneous
  Country: CN (occurrence: CN)
  Receive Date: 20211012
  Receipt Date: 20211028
  Transmission Date: 20220303
  Serious: Yes (Other)
  Sender: FDA-Public Use
  Company Number: CN-LUPIN PHARMACEUTICALS INC.-2021-19326

PATIENT
  Age: 52 Year
  Sex: Male

DRUGS (2)
  1. NIACIN [Suspect]
     Active Substance: NIACIN
     Indication: Arteriosclerosis coronary artery
     Dosage: 100 MILLIGRAM ((INJECTION)
     Route: 042
     Dates: start: 20180613
  2. SODIUM CHLORIDE [Concomitant]
     Active Substance: SODIUM CHLORIDE
     Indication: Arteriosclerosis coronary artery
     Dosage: 250 MILLILITER, QD
     Route: 042
     Dates: start: 20180613

REACTIONS (4)
  - Anxiety [Recovering/Resolving]
  - Hypersensitivity [Recovering/Resolving]
  - Palpitations [Recovering/Resolving]
  - Hyperhidrosis [Recovering/Resolving]

NARRATIVE: CASE EVENT DATE: 20180613
